FAERS Safety Report 10143802 (Version 4)
Quarter: 2014Q3

REPORT INFORMATION
  Report Type: Spontaneous
  Country: US (occurrence: US)
  Receive Date: 20140430
  Receipt Date: 20140730
  Transmission Date: 20150326
  Serious: Yes (Hospitalization, Disabling, Other)
  Sender: FDA-Public Use
  Company Number: US-009507513-1203USA02321

PATIENT
  Sex: Female
  Weight: 66.21 kg

DRUGS (3)
  1. ALENDRONATE SODIUM. [Suspect]
     Active Substance: ALENDRONATE SODIUM
     Indication: OSTEOPOROSIS
     Dosage: 70 MG, UNK
     Dates: end: 20120323
  2. FOSAMAX [Suspect]
     Active Substance: ALENDRONATE SODIUM
     Indication: OSTEOPOROSIS
     Dosage: 70 MG, UNK
     Route: 048
     Dates: start: 20050524, end: 20080401
  3. FOSAMAX [Suspect]
     Active Substance: ALENDRONATE SODIUM
     Route: 048
     Dates: end: 201003

REACTIONS (34)
  - Limb operation [Unknown]
  - Hip surgery [Unknown]
  - Drug ineffective [Unknown]
  - Hip arthroplasty [Unknown]
  - Urinary tract infection [Unknown]
  - Osteoarthritis [Unknown]
  - Periprosthetic fracture [Unknown]
  - Rotator cuff repair [Unknown]
  - Arthroscopy [Unknown]
  - Cardiac murmur [Unknown]
  - Staphylococcus test positive [Unknown]
  - Fall [Unknown]
  - Fracture delayed union [Unknown]
  - Femur fracture [Not Recovered/Not Resolved]
  - Anaemia [Unknown]
  - Glaucoma [Unknown]
  - Device failure [Unknown]
  - Spinal osteoarthritis [Unknown]
  - Bladder spasm [Unknown]
  - Urinary retention postoperative [Unknown]
  - Hip arthroplasty [Unknown]
  - Failure to thrive [Unknown]
  - Hypoaesthesia [Unknown]
  - Medical device removal [Unknown]
  - Thyroidectomy [Unknown]
  - Osteoarthritis [Unknown]
  - Hypothyroidism [Unknown]
  - Osteoarthritis [Unknown]
  - QRS axis abnormal [Unknown]
  - Rotator cuff syndrome [Unknown]
  - Dry mouth [Unknown]
  - Oedema peripheral [Unknown]
  - Open reduction of fracture [Unknown]
  - Constipation [Not Recovered/Not Resolved]

NARRATIVE: CASE EVENT DATE: 2006
